FAERS Safety Report 8156585-5 (Version None)
Quarter: 2012Q1

REPORT INFORMATION
  Report Type: 
  Country: None (occurrence: None)
  Receive Date: 20120216
  Receipt Date: 20120201
  Transmission Date: 20120608
  Serious: No
  Sender: FDA-Public Use
  Company Number: OPER20120057

PATIENT
  Sex: Female

DRUGS (1)
  1. OPANA ER 10MG (OXYMORPHONE HYDROCHLORIDE) (10 MILLIGRAM) [Suspect]
     Indication: PAIN
     Dosage: 10 MG, ORAL
     Route: 048

REACTIONS (1)
  - DRUG INEFFECTIVE [None]
